FAERS Safety Report 4427716-5 (Version None)
Quarter: 2004Q3

REPORT INFORMATION
  Report Type: 
  Country: None (occurrence: None)
  Receive Date: 20040817
  Receipt Date: 20040802
  Transmission Date: 20050211
  Serious: Yes (Hospitalization)
  Sender: FDA-Public Use
  Company Number: FR-BRISTOL-MYERS SQUIBB COMPANY-12673265

PATIENT
  Age: 48 Year
  Sex: Female

DRUGS (6)
  1. HOLOXAN [Suspect]
     Indication: HODGKIN'S DISEASE
     Route: 042
     Dates: start: 20040623, end: 20040623
  2. UROMITEXAN [Suspect]
     Dates: start: 20040623, end: 20040623
  3. NAVELBINE [Suspect]
     Indication: HODGKIN'S DISEASE
     Route: 042
     Dates: start: 20040623, end: 20040623
  4. METHYL-GAG [Suspect]
     Indication: HODGKIN'S DISEASE
     Route: 042
     Dates: start: 20040623, end: 20040623
  5. VEPESIDE-SANDOZ [Suspect]
     Indication: HODGKIN'S DISEASE
     Route: 042
     Dates: start: 20040623, end: 20040623
  6. ASPEGIC 325 [Concomitant]

REACTIONS (1)
  - ANGINA UNSTABLE [None]
